FAERS Safety Report 18526891 (Version 1)
Quarter: 2020Q4

REPORT INFORMATION
  Report Type: Spontaneous
  Country: US (occurrence: US)
  Receive Date: 20201120
  Receipt Date: 20201120
  Transmission Date: 20210114
  Serious: No
  Sender: FDA-Public Use
  Company Number: None

PATIENT
  Sex: Male
  Weight: 83.63 kg

DRUGS (4)
  1. LENALIDOMIDE [Concomitant]
     Active Substance: LENALIDOMIDE
  2. BENDAMUSTINE HYDROCHLORIDE (138783) [Suspect]
     Active Substance: BENDAMUSTINE HYDROCHLORIDE
  3. VELCADE [Concomitant]
     Active Substance: BORTEZOMIB
  4. RITUXIMAB (MOAB C2B8 ANTI CD20, CHIMERIC) [Concomitant]
     Active Substance: RITUXIMAB

REACTIONS (3)
  - Haematuria [None]
  - Bladder transitional cell carcinoma [None]
  - Bladder mass [None]

NARRATIVE: CASE EVENT DATE: 20201102
